FAERS Safety Report 9321003 (Version 1)
Quarter: 2013Q2

REPORT INFORMATION
  Report Type: Spontaneous
  Country: US (occurrence: US)
  Receive Date: 20130531
  Receipt Date: 20130531
  Transmission Date: 20140414
  Serious: Yes (Other)
  Sender: FDA-Public Use
  Company Number: US-PFIZER INC-2013164806

PATIENT
  Age: 51 Year
  Sex: Female
  Weight: 61.22 kg

DRUGS (3)
  1. LYRICA [Suspect]
     Indication: NEURALGIA
     Dosage: 100 MG, 2X/DAY
     Route: 048
     Dates: start: 2008
  2. KLONOPIN [Interacting]
     Indication: CONVULSION
     Dosage: HALF 0.5MG TABLET IN THE MORNING AND ONE 0.5MG TABLET AT NIGHT
     Route: 048
  3. TRAMADOL [Concomitant]
     Dosage: UNK

REACTIONS (2)
  - Drug interaction [Unknown]
  - Depression [Not Recovered/Not Resolved]
